FAERS Safety Report 6083178-6 (Version None)
Quarter: 2009Q1

REPORT INFORMATION
  Report Type: 
  Country: None (occurrence: None)
  Receive Date: 20090219
  Receipt Date: 20090210
  Transmission Date: 20090719
  Serious: Yes (Hospitalization)
  Sender: FDA-Public Use
  Company Number: DE-BAXTER-2009BH002312

PATIENT
  Age: 42 Year
  Sex: Female
  Weight: 54 kg

DRUGS (7)
  1. CYCLOPHOSPHAMIDE [Suspect]
     Indication: BREAST CANCER
     Route: 042
     Dates: start: 20080811, end: 20080908
  2. EPIRUBICIN [Suspect]
     Indication: BREAST CANCER
     Route: 042
     Dates: start: 20080517, end: 20080616
  3. PACLITAXEL [Suspect]
     Indication: BREAST CANCER
     Route: 042
     Dates: start: 20080630, end: 20080728
  4. PALONOSETRON [Concomitant]
     Route: 042
     Dates: start: 20080908, end: 20080908
  5. FORTECORTIN [Concomitant]
     Route: 042
     Dates: start: 20080908, end: 20080908
  6. UROMITEXAN [Concomitant]
     Dates: start: 20080908, end: 20080908
  7. DARBEPOETIN ALFA [Concomitant]
     Route: 058
     Dates: start: 20080901, end: 20080901

REACTIONS (3)
  - ANAEMIA [None]
  - GENERAL PHYSICAL CONDITION ABNORMAL [None]
  - SYNCOPE [None]
